FAERS Safety Report 16351269 (Version 4)
Quarter: 2025Q3

REPORT INFORMATION
  Report Type: Spontaneous
  Country: EU (occurrence: EU)
  Receive Date: 20190524
  Receipt Date: 20250911
  Transmission Date: 20251021
  Serious: Yes (Hospitalization, Other)
  Sender: AUROBINDO
  Company Number: EU-AUROBINDO-AUR-APL-2019-029479

PATIENT
  Age: 61 Year
  Sex: Male

DRUGS (2)
  1. METOPROLOL [Suspect]
     Active Substance: METOPROLOL
     Indication: Coronary artery disease
     Route: 065
  2. METOPROLOL [Suspect]
     Active Substance: METOPROLOL
     Dosage: 50 MILLIGRAM, ONCE A DAY
     Route: 065

REACTIONS (5)
  - Sinus arrest [Recovered/Resolved]
  - Cardiac pacemaker insertion [Unknown]
  - Syncope [Recovered/Resolved]
  - Dizziness [Unknown]
  - Sinus node dysfunction [Recovered/Resolved]
